FAERS Safety Report 14259975 (Version 1)
Quarter: 2017Q4

REPORT INFORMATION
  Report Type: Spontaneous
  Country: US (occurrence: US)
  Receive Date: 20171207
  Receipt Date: 20171207
  Transmission Date: 20180321
  Serious: No
  Sender: FDA-Public Use
  Company Number: US-VIFOR (INTERNATIONAL) INC.-VIT-2017-08592

PATIENT
  Age: 66 Year
  Sex: Male

DRUGS (10)
  1. ROZEREM [Concomitant]
     Active Substance: RAMELTEON
  2. LANTUS SOLOSTAR [Concomitant]
     Active Substance: INSULIN GLARGINE
  3. KEPPRA [Concomitant]
     Active Substance: LEVETIRACETAM
  4. KAYEXALATE [Concomitant]
     Active Substance: SODIUM POLYSTYRENE SULFONATE
  5. LABETALOL HYDROCHLORIDE. [Concomitant]
     Active Substance: LABETALOL HYDROCHLORIDE
  6. EMLA [Concomitant]
     Active Substance: LIDOCAINE\PRILOCAINE
  7. LOSARTAN POTASSIUM. [Concomitant]
     Active Substance: LOSARTAN POTASSIUM
  8. VELTASSA [Suspect]
     Active Substance: PATIROMER
     Indication: HYPERKALAEMIA
     Route: 048
     Dates: start: 20170719
  9. GABAPENTIN. [Concomitant]
     Active Substance: GABAPENTIN
  10. ETHYL CHLORIDE [Concomitant]
     Active Substance: ETHYL CHLORIDE

REACTIONS (2)
  - Inappropriate schedule of drug administration [Not Recovered/Not Resolved]
  - Drug dose omission [Not Recovered/Not Resolved]

NARRATIVE: CASE EVENT DATE: 201707
